FAERS Safety Report 8839542 (Version 1)
Quarter: 2012Q4

REPORT INFORMATION
  Report Type: Spontaneous
  Country: US (occurrence: None)
  Receive Date: 20121012
  Receipt Date: 20121012
  Transmission Date: 20130627
  Serious: Yes (Other)
  Sender: FDA-Public Use
  Company Number: None

PATIENT
  Age: 66 Year
  Sex: Male
  Weight: 92.08 kg

DRUGS (1)
  1. DOXIL [Suspect]
     Indication: BURKITT^S LYMPHOMA
     Dates: start: 201008, end: 201012

REACTIONS (1)
  - Myelodysplastic syndrome [None]
